FAERS Safety Report 24226936 (Version 3)
Quarter: 2024Q4

REPORT INFORMATION
  Report Type: Report from Study
  Country: US (occurrence: US)
  Receive Date: 20240820
  Receipt Date: 20241009
  Transmission Date: 20250115
  Serious: Yes (Other)
  Sender: BAYER
  Company Number: US-BAYER-2024A117330

PATIENT
  Age: 41 Year
  Sex: Male

DRUGS (5)
  1. ADEMPAS [Suspect]
     Active Substance: RIOCIGUAT
     Indication: Pulmonary hypertension
  2. ADEMPAS [Suspect]
     Active Substance: RIOCIGUAT
     Indication: Pulmonary arterial hypertension
     Dosage: 1.5 MG, TID
     Route: 048
     Dates: start: 202407
  3. ADEMPAS [Suspect]
     Active Substance: RIOCIGUAT
     Indication: Pulmonary hypertension
     Dosage: 2 MG, TID
     Route: 048
     Dates: start: 202408
  4. ADEMPAS [Suspect]
     Active Substance: RIOCIGUAT
     Indication: Pulmonary hypertension
     Dosage: 2.5 MG, TID
     Route: 048
     Dates: start: 202409
  5. OPSUMIT [Concomitant]
     Active Substance: MACITENTAN

REACTIONS (10)
  - Syncope [None]
  - Dyspnoea [None]
  - Chest pain [None]
  - Fatigue [None]
  - Dizziness [None]
  - Peripheral swelling [None]
  - Joint swelling [None]
  - Dyspepsia [None]
  - Weight decreased [None]
  - Insomnia [Not Recovered/Not Resolved]
